FAERS Safety Report 24294128 (Version 1)
Quarter: 2024Q3

REPORT INFORMATION
  Report Type: Spontaneous
  Country: US (occurrence: US)
  Receive Date: 20240906
  Receipt Date: 20240906
  Transmission Date: 20241016
  Serious: No
  Sender: DOMPE FARMACEUTICI
  Company Number: US-FARMAPROD-202308-202404-1639

PATIENT
  Age: 83 Year
  Sex: Male

DRUGS (11)
  1. OXERVATE [Suspect]
     Active Substance: CENEGERMIN-BKBJ
     Indication: Neurotrophic keratopathy
     Route: 047
     Dates: start: 20240417, end: 20240612
  2. OXERVATE [Suspect]
     Active Substance: CENEGERMIN-BKBJ
  3. OXERVATE [Suspect]
     Active Substance: CENEGERMIN-BKBJ
  4. CEPHALEXIN [Concomitant]
     Active Substance: CEPHALEXIN
  5. DIPHENHYDRAMINE HYDROCHLORIDE [Concomitant]
     Active Substance: DIPHENHYDRAMINE HYDROCHLORIDE
  6. GOSERELIN [Concomitant]
     Active Substance: GOSERELIN
     Dosage: IMPLANT
  7. WARFARIN SODIUM [Concomitant]
     Active Substance: WARFARIN SODIUM
  8. SIMVASTATIN [Concomitant]
     Active Substance: SIMVASTATIN
  9. LISINOPRIL [Concomitant]
     Active Substance: LISINOPRIL
  10. VALTREX [Concomitant]
     Active Substance: VALACYCLOVIR HYDROCHLORIDE
  11. TRIFLURIDINE [Concomitant]
     Active Substance: TRIFLURIDINE

REACTIONS (2)
  - Product dose omission issue [Unknown]
  - Drug ineffective [Not Recovered/Not Resolved]

NARRATIVE: CASE EVENT DATE: 20240425
